FAERS Safety Report 8746687 (Version 3)
Quarter: 2012Q4

REPORT INFORMATION
  Report Type: 
  Country: US (occurrence: US)
  Receive Date: 20120827
  Receipt Date: 20121002
  Transmission Date: 20130627
  Serious: Yes (Other)
  Sender: FDA-Public Use
  Company Number: US-PFIZER INC-2012207409

PATIENT
  Age: 80 Year
  Sex: Female

DRUGS (18)
  1. LIPITOR [Suspect]
     Dosage: 40 mg, daily qhs
  2. ASA [Concomitant]
     Dosage: 81 mg, daily
  3. NORVASC [Concomitant]
     Dosage: 10 mg, 1/2 daily
  4. NORVASC [Concomitant]
     Dosage: 10 mg, 2x/day
  5. NORVASC [Concomitant]
     Dosage: 10 mg, 1/2 2x/day
  6. CENTRUM SILVER [Concomitant]
     Dosage: UNK, daily
  7. CALCIUM WITH VITAMIN D [Concomitant]
     Dosage: UNK, daily
  8. DIGOXIN [Concomitant]
     Dosage: 0.125 UNK, daily
  9. FISH OIL [Concomitant]
     Dosage: 4000 UNK, daily
  10. LASIX [Concomitant]
     Dosage: 40 mg, Qam
  11. LIDODERM PATCH [Concomitant]
     Dosage: UNK, daily
  12. CLARITIN [Concomitant]
     Dosage: UNK,  daily
  13. COZAAR [Concomitant]
     Dosage: 100 mg, daily
  14. METOPROLOL SUCCINATE [Concomitant]
     Dosage: 100 mg, daily
  15. METOPROLOL SUCCINATE [Concomitant]
     Dosage: 80 mg, daily
  16. PRILOSEC [Concomitant]
     Dosage: UNK, daily
  17. EFFIENT [Concomitant]
     Dosage: 10 mg, daily
  18. LUTEIN [Concomitant]
     Dosage: 20 mg, daily

REACTIONS (4)
  - Myocardial infarction [Unknown]
  - Blood pressure increased [Unknown]
  - Waist circumference increased [Unknown]
  - Body mass index increased [Unknown]
